FAERS Safety Report 4488207-9 (Version None)
Quarter: 2004Q4

REPORT INFORMATION
  Report Type: 
  Country: None (occurrence: None)
  Receive Date: 20041026
  Receipt Date: 20040921
  Transmission Date: 20050328
  Serious: Yes (Hospitalization, Other)
  Sender: FDA-Public Use
  Company Number: USA040260101

PATIENT
  Age: 14 Year
  Sex: Male
  Weight: 63 kg

DRUGS (2)
  1. STRATTERA [Suspect]
     Indication: ATTENTION DEFICIT/HYPERACTIVITY DISORDER
     Dosage: 80 MG/1 DAY
     Dates: start: 20030101, end: 20040525
  2. ZOLOFT [Concomitant]

REACTIONS (10)
  - ANTIBODY TEST POSITIVE [None]
  - BIOPSY LIVER ABNORMAL [None]
  - BONE MARROW DEPRESSION [None]
  - CYTOMEGALOVIRUS ANTIBODY POSITIVE [None]
  - DECREASED APPETITE [None]
  - FATIGUE [None]
  - HEPATIC FIBROSIS [None]
  - HEPATITIS [None]
  - NEUTROPENIA [None]
  - PLATELET COUNT DECREASED [None]
